FAERS Safety Report 6934483-X (Version None)
Quarter: 2010Q3

REPORT INFORMATION
  Report Type: 
  Country: None (occurrence: None)
  Receive Date: 20100820
  Receipt Date: 20100816
  Transmission Date: 20110219
  Serious: Yes (Other)
  Sender: FDA-Public Use
  Company Number: US-JNJCH-2010018754

PATIENT
  Sex: Male
  Weight: 86.2 kg

DRUGS (3)
  1. ZYRTEC [Suspect]
     Indication: SEASONAL ALLERGY
     Dosage: TEXT:AS REQUIRED
     Route: 048
  2. TESTOSTERONE [Suspect]
     Indication: BLOOD TESTOSTERONE DECREASED
     Route: 062
  3. COFFEE [Suspect]
     Indication: CAFFEINE CONSUMPTION
     Dosage: TEXT:REGULARLY
     Route: 048

REACTIONS (1)
  - EPILEPSY [None]
